FAERS Safety Report 18352432 (Version 2)
Quarter: 2020Q4

REPORT INFORMATION
  Report Type: Report from Study
  Country: None (occurrence: US)
  Receive Date: 20201007
  Receipt Date: 20201101
  Transmission Date: 20210114
  Serious: Yes (Other)
  Sender: FDA-Public Use
  Company Number: US-ABBVIE-20K-163-3588604-00

PATIENT
  Sex: Female

DRUGS (1)
  1. RINVOQ [Suspect]
     Active Substance: UPADACITINIB
     Indication: RHEUMATOID ARTHRITIS
     Route: 048

REACTIONS (10)
  - Spinal operation [Unknown]
  - Musculoskeletal discomfort [Not Recovered/Not Resolved]
  - Therapeutic nerve ablation [Unknown]
  - Joint dislocation [Unknown]
  - Musculoskeletal chest pain [Unknown]
  - Spinal operation [Unknown]
  - Sciatica [Unknown]
  - Scoliosis [Unknown]
  - Rheumatoid arthritis [Recovering/Resolving]
  - Back pain [Not Recovered/Not Resolved]

NARRATIVE: CASE EVENT DATE: 1966
